FAERS Safety Report 5395617-4 (Version None)
Quarter: 2007Q3

REPORT INFORMATION
  Report Type: 
  Country: None (occurrence: None)
  Receive Date: 20070720
  Receipt Date: 20070713
  Transmission Date: 20080115
  Serious: Yes (Death, Hospitalization)
  Sender: FDA-Public Use
  Company Number: TCI2007A03464

PATIENT
  Age: 83 Year
  Sex: Male

DRUGS (9)
  1. ACTOS [Suspect]
     Indication: DIABETES MELLITUS
     Dosage: 15 MG (15 MG, 1 IN 1 D) PER ORAL
     Route: 048
     Dates: start: 20050610, end: 20050617
  2. ASPIRIN [Concomitant]
  3. TICLOPIDINE HCL [Concomitant]
  4. WARFARIN SODIUM [Concomitant]
  5. LASIX [Concomitant]
  6. ALDACTONE [Concomitant]
  7. CONIEL (BENIDIPINE HYDROCHLORIDE) [Concomitant]
  8. PROSTAL L (CHLORMADINONE ACETATE) [Concomitant]
  9. EVIPROSTAT (SODIUM TAUROCHOLATE, MANGANESE CHLORIDE, TRITICUM AESTIVUM [Concomitant]

REACTIONS (3)
  - CARDIAC FAILURE [None]
  - CORONARY ARTERY DISEASE [None]
  - PNEUMONIA [None]
